FAERS Safety Report 7699296-2 (Version None)
Quarter: 2011Q3

REPORT INFORMATION
  Report Type: 
  Country: None (occurrence: None)
  Receive Date: 20110819
  Receipt Date: 20101123
  Transmission Date: 20111222
  Serious: Yes (Other)
  Sender: FDA-Public Use
  Company Number: US-AMGEN-USASP2010003295

PATIENT

DRUGS (12)
  1. NPLATE [Suspect]
     Dates: start: 20100512, end: 20100512
  2. LEVOTHYROXINE SODIUM [Concomitant]
     Dosage: UNK
     Dates: start: 20100429
  3. DILTIAZEM [Concomitant]
  4. PERCOCET [Concomitant]
     Dosage: UNK
     Dates: start: 20100513
  5. BUMETANIDE [Concomitant]
  6. NPLATE [Suspect]
     Indication: IDIOPATHIC THROMBOCYTOPENIC PURPURA
     Dosage: 1 A?G/KG, UNK
     Dates: start: 20100513, end: 20100520
  7. TYLENOL (CAPLET) [Concomitant]
     Dosage: UNK
     Dates: start: 20100505
  8. INSULIN [Concomitant]
  9. METOCLOPRAMIDE [Concomitant]
     Dosage: UNK
     Dates: start: 20100513
  10. CLONIDINE [Concomitant]
  11. METOPROLOL SUCCINATE [Concomitant]
     Dosage: 50 MG, UNK
  12. RITUXIMAB [Concomitant]
     Dosage: UNK
     Dates: start: 20100513

REACTIONS (1)
  - PLATELET COUNT INCREASED [None]
